FAERS Safety Report 11692761 (Version 1)
Quarter: 2015Q4

REPORT INFORMATION
  Report Type: Report from Study
  Country: US (occurrence: US)
  Receive Date: 20151103
  Receipt Date: 20151103
  Transmission Date: 20160304
  Serious: Yes (Hospitalization, Other)
  Sender: FDA-Public Use
  Company Number: US-MALLINCKRODT-T201502663

PATIENT
  Sex: Male

DRUGS (3)
  1. REPOSITORY CORTICOTROPIN INJECTION [Suspect]
     Active Substance: CORTICOTROPIN
     Indication: FOCAL SEGMENTAL GLOMERULOSCLEROSIS
     Dosage: 80 UNITS/1 ML EVERY 72 HOURS
     Route: 058
     Dates: start: 20141006, end: 20150913
  2. REPOSITORY CORTICOTROPIN INJECTION [Suspect]
     Active Substance: CORTICOTROPIN
     Indication: PROTEINURIA
     Dosage: 80 UNITS/1 ML EVERY 72 HOURS
     Route: 058
     Dates: start: 20150917
  3. PREDNISONE. [Concomitant]
     Active Substance: PREDNISONE
     Dosage: 5 MG, QD
     Route: 048
     Dates: end: 201509

REACTIONS (7)
  - Anxiety [Unknown]
  - Flushing [Unknown]
  - Fluid retention [Recovering/Resolving]
  - Cellulitis [Recovering/Resolving]
  - Blood glucose increased [Recovered/Resolved]
  - Erythema [Unknown]
  - Skin exfoliation [Unknown]
